FAERS Safety Report 16427668 (Version 1)
Quarter: 2019Q2

REPORT INFORMATION
  Report Type: Spontaneous
  Country: US (occurrence: US)
  Receive Date: 20190613
  Receipt Date: 20190613
  Transmission Date: 20190711
  Serious: No
  Sender: FDA-Public Use
  Company Number: US-BAYER-2019-113458

PATIENT
  Age: 59 Year
  Sex: Female
  Weight: 79.37 kg

DRUGS (1)
  1. ALEVE [Suspect]
     Active Substance: NAPROXEN SODIUM
     Indication: MUSCLE STRAIN
     Dosage: , 3 TABLETS EVERY 12 HOURSUNK
     Dates: start: 20190610

REACTIONS (5)
  - Off label use [Unknown]
  - Product use in unapproved indication [Unknown]
  - Drug effective for unapproved indication [Unknown]
  - Product prescribing issue [Unknown]
  - Circumstance or information capable of leading to medication error [Unknown]
